FAERS Safety Report 6745114-6 (Version None)
Quarter: 2010Q2

REPORT INFORMATION
  Report Type: 
  Country: None (occurrence: None)
  Receive Date: 20100527
  Receipt Date: 20100517
  Transmission Date: 20101027
  Serious: Yes (Other)
  Sender: FDA-Public Use
  Company Number: ES-WATSON-2010-06870

PATIENT
  Age: 64 Year
  Sex: Male

DRUGS (1)
  1. MELOXICAM (WATSON LABORATORIES) [Suspect]
     Indication: BACK PAIN
     Dosage: 15 MG, DAILY
     Route: 048

REACTIONS (1)
  - AUTOIMMUNE HEPATITIS [None]
